FAERS Safety Report 14657084 (Version 3)
Quarter: 2018Q2

REPORT INFORMATION
  Report Type: Report from Study
  Country: US (occurrence: US)
  Receive Date: 20180319
  Receipt Date: 20180604
  Transmission Date: 20180711
  Serious: Yes (Death, Hospitalization, Other)
  Sender: FDA-Public Use
  Company Number: US-ACTELION-A-US2018-169303

PATIENT
  Age: 65 Year
  Sex: Male
  Weight: 100.23 kg

DRUGS (10)
  1. OPSUMIT [Suspect]
     Active Substance: MACITENTAN
     Indication: PULMONARY ARTERIAL HYPERTENSION
     Dosage: 10 MG, QD
     Route: 048
     Dates: start: 201712
  2. COREG [Concomitant]
     Active Substance: CARVEDILOL
  3. HYDROCHLOROTHIAZIDE. [Concomitant]
     Active Substance: HYDROCHLOROTHIAZIDE
  4. BUMETANIDE. [Concomitant]
     Active Substance: BUMETANIDE
  5. ADEMPAS [Concomitant]
     Active Substance: RIOCIGUAT
  6. UPTRAVI [Suspect]
     Active Substance: SELEXIPAG
     Indication: PULMONARY ARTERIAL HYPERTENSION
     Dosage: 1200 MCG, BID
     Route: 048
  7. UPTRAVI [Suspect]
     Active Substance: SELEXIPAG
     Dosage: 1400 MCG, BID
     Route: 048
  8. METFORMIN [Concomitant]
     Active Substance: METFORMIN HYDROCHLORIDE
  9. AMLODIPINE [Concomitant]
     Active Substance: AMLODIPINE BESYLATE
  10. ADCIRCA [Concomitant]
     Active Substance: TADALAFIL

REACTIONS (23)
  - Adhesion [Unknown]
  - Ascites [Unknown]
  - Septic shock [Unknown]
  - Biliary drainage [Unknown]
  - Drug dose omission [Not Recovered/Not Resolved]
  - Hepatic cirrhosis [Unknown]
  - Hypotension [Unknown]
  - Condition aggravated [Unknown]
  - Toxic shock syndrome [Unknown]
  - Pulmonary arterial hypertension [Unknown]
  - Bile duct T-tube insertion [Unknown]
  - Constipation [Unknown]
  - Death [Fatal]
  - Pneumonia bacterial [Unknown]
  - Liver injury [Unknown]
  - Neutropenia [Unknown]
  - Escherichia infection [Unknown]
  - Pollakiuria [Unknown]
  - Unevaluable event [Unknown]
  - Throat tightness [Unknown]
  - Chills [Unknown]
  - Peritonitis [Unknown]
  - Weight increased [Unknown]

NARRATIVE: CASE EVENT DATE: 2018
